FAERS Safety Report 9163433 (Version 1)
Quarter: 2013Q1

REPORT INFORMATION
  Report Type: Spontaneous
  Country: NL (occurrence: None)
  Receive Date: 20130221
  Receipt Date: 20130221
  Transmission Date: 20140127
  Serious: Yes (Hospitalization)
  Sender: FDA-Public Use
  Company Number: IMP_06557_2013

PATIENT
  Age: 58 Year
  Sex: Male

DRUGS (3)
  1. OMEPRAZOLE (OMEPRAZOLE) [Suspect]
     Indication: ABDOMINAL PAIN UPPER
     Dosage: 40 MG, DAILY, 8 YEARS UNTIL NOT CONTINUING
  2. CAPTOPRIL (UNKNOWN) [Concomitant]
  3. SIMVASTATIN (UNKNOWN) [Concomitant]

REACTIONS (7)
  - Hypomagnesaemia [None]
  - Loss of consciousness [None]
  - Convulsion [None]
  - Muscle spasms [None]
  - Hypocalcaemia [None]
  - Hypokalaemia [None]
  - Blood parathyroid hormone decreased [None]
